FAERS Safety Report 6446503-X (Version None)
Quarter: 2009Q4

REPORT INFORMATION
  Report Type: 
  Country: None (occurrence: None)
  Receive Date: 20091110
  Receipt Date: 20090714
  Transmission Date: 20100525
  Serious: Yes (Other)
  Sender: FDA-Public Use
  Company Number: 1000007154

PATIENT
  Age: 56 Year
  Sex: Female

DRUGS (16)
  1. SAVELLA [Suspect]
     Indication: FIBROMYALGIA
     Dosage: 12.5 MG (12.5 MG, 1 IN 1  D), ORAL
     Route: 048
     Dates: start: 20090511, end: 20090511
  2. SAVELLA [Suspect]
     Indication: FIBROMYALGIA
     Dosage: 100 MG(50 MG, 2 IN 1 D), ORAL
     Route: 048
     Dates: start: 20090518, end: 20090521
  3. ASPIRIN [Concomitant]
  4. VERAPAMIL [Concomitant]
  5. CELEXA [Concomitant]
  6. CALCIUM [Concomitant]
  7. B COMPLEX VITAMINS [Concomitant]
  8. VALIUM [Concomitant]
  9. LIDODERM (POULTICE OR PATCH) [Concomitant]
  10. VITAMIN B-12 [Concomitant]
  11. AMBIEN [Concomitant]
  12. XANAX [Concomitant]
  13. VICROFEN [Concomitant]
  14. CENTRUM [Concomitant]
  15. IBUPROFEN [Concomitant]
  16. SOMA [Concomitant]

REACTIONS (14)
  - AMNESIA [None]
  - BLOOD PRESSURE FLUCTUATION [None]
  - CHEST DISCOMFORT [None]
  - CHEST PAIN [None]
  - CRYING [None]
  - DEPRESSED MOOD [None]
  - FALL [None]
  - HAEMATOMA [None]
  - HEADACHE [None]
  - HEART RATE INCREASED [None]
  - HYPERHIDROSIS [None]
  - MIGRAINE [None]
  - POOR QUALITY SLEEP [None]
  - SUICIDAL IDEATION [None]
